FAERS Safety Report 5456191-7 (Version None)
Quarter: 2007Q3

REPORT INFORMATION
  Report Type: 
  Country: None (occurrence: None)
  Receive Date: 20070918
  Receipt Date: 20070330
  Transmission Date: 20080115
  Serious: No
  Sender: FDA-Public Use
  Company Number: US-ASTRAZENECA-2006UW23543

PATIENT
  Age: 31 Year
  Sex: Female

DRUGS (7)
  1. SEROQUEL [Suspect]
     Indication: BIPOLAR DISORDER
     Route: 048
     Dates: start: 19970101
  2. ABILIFY [Concomitant]
     Dates: start: 20040101
  3. GEODON [Concomitant]
     Dates: start: 19970101
  4. HALDOL [Concomitant]
     Dates: start: 19970101
  5. ZYPREXA [Concomitant]
     Dates: start: 19970101
  6. PEALITIN [Concomitant]
     Dates: start: 19970101
  7. COGENTOR [Concomitant]
     Dates: start: 19970101

REACTIONS (2)
  - GESTATIONAL DIABETES [None]
  - TYPE 2 DIABETES MELLITUS [None]
